FAERS Safety Report 9546486 (Version 1)
Quarter: 2013Q3

REPORT INFORMATION
  Report Type: Spontaneous
  Country: IT (occurrence: IT)
  Receive Date: 20130923
  Receipt Date: 20130923
  Transmission Date: 20140515
  Serious: Yes (Other)
  Sender: FDA-Public Use
  Company Number: PHHY2013IT105350

PATIENT
  Age: 3 Year
  Sex: Male

DRUGS (1)
  1. CICLOSPORIN [Suspect]

REACTIONS (1)
  - Splenomegaly [Unknown]
